FAERS Safety Report 7477656-2 (Version None)
Quarter: 2011Q2

REPORT INFORMATION
  Report Type: 
  Country: None (occurrence: None)
  Receive Date: 20110513
  Receipt Date: 20110407
  Transmission Date: 20111010
  Serious: Yes (Hospitalization)
  Sender: FDA-Public Use
  Company Number: US-BAYER-201039417NA

PATIENT
  Age: 29 Year
  Sex: Female
  Weight: 77 kg

DRUGS (8)
  1. YAZ [Suspect]
     Indication: ORAL CONTRACEPTION
     Route: 048
     Dates: start: 20080312, end: 20090101
  2. PROPOXYPHENE NAPSYLATE AND ACETAMINOPHEN [Concomitant]
  3. SERTRALINE HYDROCHLORIDE [Concomitant]
  4. YASMIN [Suspect]
     Route: 048
     Dates: start: 20040123, end: 20040625
  5. YAZ [Suspect]
     Route: 048
     Dates: start: 20040123, end: 20040625
  6. YASMIN [Suspect]
     Indication: ORAL CONTRACEPTION
     Route: 048
     Dates: start: 20080321, end: 20090101
  7. YAZ [Suspect]
     Route: 048
     Dates: start: 20061003, end: 20070401
  8. YASMIN [Suspect]
     Route: 048
     Dates: start: 20061003, end: 20070401

REACTIONS (2)
  - CHOLECYSTITIS CHRONIC [None]
  - GALLBLADDER DISORDER [None]
